FAERS Safety Report 5195618-5 (Version None)
Quarter: 2006Q4

REPORT INFORMATION
  Report Type: 
  Country: None (occurrence: None)
  Receive Date: 20061226
  Receipt Date: 20061226
  Transmission Date: 20070319
  Serious: Yes (Other)
  Sender: FDA-Public Use
  Company Number: None

PATIENT
  Sex: Male
  Weight: 81.6475 kg

DRUGS (1)
  1. ACCUTANE [Suspect]
     Indication: ACNE CYSTIC
     Dosage: 2 PER DAY
     Dates: start: 20001101, end: 20020901

REACTIONS (5)
  - ABNORMAL BEHAVIOUR [None]
  - BANKRUPTCY [None]
  - DEPRESSION [None]
  - LOSS OF EMPLOYMENT [None]
  - SOCIAL AVOIDANT BEHAVIOUR [None]
